FAERS Safety Report 15906296 (Version 1)
Quarter: 2019Q1

REPORT INFORMATION
  Report Type: Report from Study
  Country: US (occurrence: US)
  Receive Date: 20190204
  Receipt Date: 20190204
  Transmission Date: 20190417
  Serious: Yes (Hospitalization)
  Sender: FDA-Public Use
  Company Number: US-SAKK-2019SA023139AA

PATIENT
  Age: 59 Year
  Sex: Male

DRUGS (1)
  1. INSULIN GLARGINE [Suspect]
     Active Substance: INSULIN GLARGINE
     Indication: TYPE 2 DIABETES MELLITUS
     Dosage: 45 U, QD
     Route: 058

REACTIONS (5)
  - Fall [Unknown]
  - Back injury [Unknown]
  - Procedural pain [Not Recovered/Not Resolved]
  - Cerebrovascular accident [Unknown]
  - Product dose omission [Unknown]

NARRATIVE: CASE EVENT DATE: 20181115
